FAERS Safety Report 6917221-6 (Version None)
Quarter: 2010Q3

REPORT INFORMATION
  Report Type: 
  Country: None (occurrence: None)
  Receive Date: 20100804
  Receipt Date: 20100721
  Transmission Date: 20110219
  Serious: Yes (Hospitalization)
  Sender: FDA-Public Use
  Company Number: LEO-2010-00651

PATIENT
  Age: 39 Year
  Sex: Female

DRUGS (2)
  1. INNOHEP [Suspect]
     Indication: ANTICOAGULANT THERAPY
  2. WARFARIN SODIUM [Concomitant]

REACTIONS (2)
  - CARDIAC VALVE REPLACEMENT COMPLICATION [None]
  - CARDIOGENIC SHOCK [None]
